FAERS Safety Report 6888259-2 (Version None)
Quarter: 2010Q3

REPORT INFORMATION
  Report Type: 
  Country: None (occurrence: None)
  Receive Date: 20100730
  Receipt Date: 20100719
  Transmission Date: 20110219
  Serious: Yes (Hospitalization)
  Sender: FDA-Public Use
  Company Number: HU-ELI_LILLY_AND_COMPANY-HU201007003045

PATIENT
  Sex: Male
  Weight: 65 kg

DRUGS (16)
  1. PEMETREXED [Suspect]
     Indication: NON-SMALL CELL LUNG CANCER
     Dosage: 800 MG, OTHER
     Route: 042
     Dates: start: 20100618
  2. CISPLATIN [Suspect]
     Indication: NON-SMALL CELL LUNG CANCER
     Dosage: 128 MG, UNK
     Dates: start: 20100618
  3. OTHER PHARMA COMPANY INV DRUG [Suspect]
     Indication: NON-SMALL CELL LUNG CANCER
     Dosage: 800 MG, OTHER
     Route: 042
     Dates: start: 20100618
  4. SERETIDE [Concomitant]
  5. SPIRIVA [Concomitant]
  6. VENTOLIN                                /SCH/ [Concomitant]
  7. THEOSPIREX [Concomitant]
  8. AMBROXOL [Concomitant]
  9. ANDAXIN [Concomitant]
  10. TIAPRIDAL [Concomitant]
  11. FOLIC ACID [Concomitant]
     Indication: PREMEDICATION
     Dates: start: 20100610
  12. VITAMIN B-12 [Concomitant]
     Indication: PREMEDICATION
     Dates: start: 20100610
  13. MEGACE [Concomitant]
     Indication: DECREASED APPETITE
     Dates: start: 20100625, end: 20100630
  14. DALACIN                            /00166002/ [Concomitant]
     Indication: RASH
     Dates: start: 20100625
  15. ELOCON [Concomitant]
     Indication: RASH
     Dates: start: 20100625
  16. QUAMATEL [Concomitant]
     Indication: PROPHYLAXIS AGAINST GASTROINTESTINAL ULCER
     Dates: start: 20100630

REACTIONS (2)
  - ILEUS PARALYTIC [None]
  - RENAL FAILURE [None]
